FAERS Safety Report 11378857 (Version 2)
Quarter: 2015Q3

REPORT INFORMATION
  Report Type: Spontaneous
  Country: US (occurrence: US)
  Receive Date: 20150811
  Receipt Date: 20150903
  Transmission Date: 20151125
  Serious: No
  Sender: FDA-Public Use
  Company Number: US-ELI_LILLY_AND_COMPANY-US200907005836

PATIENT
  Age: 74 Year
  Sex: Male

DRUGS (16)
  1. HUMULIN R [Suspect]
     Active Substance: INSULIN HUMAN
     Dosage: 17 U, UNK
     Dates: start: 20090727
  2. ZETIA [Concomitant]
     Active Substance: EZETIMIBE
  3. COMBIGAN [Concomitant]
     Active Substance: BRIMONIDINE TARTRATE\TIMOLOL MALEATE
  4. ASPIRIN. [Concomitant]
     Active Substance: ASPIRIN
  5. TRAVATAN [Concomitant]
     Active Substance: TRAVOPROST
  6. LISINOPRIL. [Concomitant]
     Active Substance: LISINOPRIL
  7. LASIX [Concomitant]
     Active Substance: FUROSEMIDE
  8. HUMULIN R [Suspect]
     Active Substance: INSULIN HUMAN
     Indication: DIABETES MELLITUS
     Dosage: 20 U, 4/D
     Dates: start: 20090723
  9. LANTUS [Concomitant]
     Active Substance: INSULIN GLARGINE
     Dates: end: 20090723
  10. CARVEDILOL. [Concomitant]
     Active Substance: CARVEDILOL
  11. POTASSIUM [Concomitant]
     Active Substance: POTASSIUM
  12. METOLAZONE. [Concomitant]
     Active Substance: METOLAZONE
  13. OMEPRAZOLE. [Concomitant]
     Active Substance: OMEPRAZOLE
  14. HUMULIN R [Suspect]
     Active Substance: INSULIN HUMAN
     Dosage: 30 U, 4/D
     Dates: start: 200907
  15. HUMALOG [Suspect]
     Active Substance: INSULIN LISPRO
     Indication: DIABETES MELLITUS
     Dosage: UNK, UNK
     Dates: end: 20090723
  16. BENADRYL [Concomitant]
     Active Substance: DIPHENHYDRAMINE HYDROCHLORIDE

REACTIONS (2)
  - Blood glucose increased [Not Recovered/Not Resolved]
  - Drug ineffective [Recovered/Resolved]

NARRATIVE: CASE EVENT DATE: 20090727
